FAERS Safety Report 9455714 (Version 1)
Quarter: 2013Q3

REPORT INFORMATION
  Report Type: Report from Study
  Country: CA (occurrence: CA)
  Receive Date: 20130813
  Receipt Date: 20130813
  Transmission Date: 20140515
  Serious: Yes (Hospitalization, Other)
  Sender: FDA-Public Use
  Company Number: CA-JNJFOC-20130201699

PATIENT
  Age: 45 Year
  Sex: Female
  Weight: 57.5 kg

DRUGS (5)
  1. REMICADE [Suspect]
     Indication: CROHN^S DISEASE
     Route: 042
     Dates: start: 20130403
  2. REMICADE [Suspect]
     Indication: CROHN^S DISEASE
     Route: 042
     Dates: start: 20090330
  3. BIRTH CONTROL PILL [Concomitant]
     Route: 065
  4. HYZAAR [Concomitant]
     Route: 065
  5. MARVELON [Concomitant]
     Route: 065

REACTIONS (6)
  - Intestinal resection [Unknown]
  - Cholecystectomy [Unknown]
  - Post procedural infection [Recovered/Resolved]
  - Electrolyte imbalance [Unknown]
  - Renal failure [Unknown]
  - Weight decreased [Unknown]
